FAERS Safety Report 6617770-4 (Version None)
Quarter: 2010Q1

REPORT INFORMATION
  Report Type: 
  Country: None (occurrence: None)
  Receive Date: 20100302
  Receipt Date: 20100216
  Transmission Date: 20100710
  Serious: Yes (Hospitalization)
  Sender: FDA-Public Use
  Company Number: 2010AP000301

PATIENT
  Age: 78 Year
  Sex: Female

DRUGS (8)
  1. OMEPRAZOLE [Suspect]
     Dosage: PO
     Route: 048
     Dates: start: 19990101
  2. PANTOPRAZOLE SODIUM [Suspect]
  3. ESOMEPRAZOLE MAGNESIUM [Suspect]
  4. ERGOCALCIFEROL [Concomitant]
  5. CALCIUM CARBONATE [Concomitant]
  6. COLECALCIFEROL (COLECALCIFEROL) [Concomitant]
  7. FUROSEMIDE [Concomitant]
  8. LANSOPRAZOLE [Concomitant]

REACTIONS (8)
  - CIRCULATORY COLLAPSE [None]
  - GAIT DISTURBANCE [None]
  - HYPOCALCAEMIA [None]
  - HYPOMAGNESAEMIA [None]
  - LETHARGY [None]
  - MUSCLE SPASMS [None]
  - PARAESTHESIA [None]
  - TETANY [None]
